FAERS Safety Report 7436609-0 (Version None)
Quarter: 2011Q2

REPORT INFORMATION
  Report Type: 
  Country: None (occurrence: None)
  Receive Date: 20110418
  Receipt Date: 20110401
  Transmission Date: 20111010
  Serious: Yes (Death, Hospitalization)
  Sender: FDA-Public Use
  Company Number: AE 2011-126

PATIENT
  Age: 41 Year
  Sex: Male

DRUGS (2)
  1. LACTULOSE [Concomitant]
  2. CLOZAPINE [Suspect]
     Indication: SCHIZOPHRENIA, PARANOID TYPE
     Dosage: 750 MG DAILY PO
     Route: 048
     Dates: start: 20040101, end: 20080901

REACTIONS (16)
  - SOMNOLENCE [None]
  - DIZZINESS [None]
  - CONSTIPATION [None]
  - DIARRHOEA [None]
  - RESPIRATORY ARREST [None]
  - LEUKOCYTOSIS [None]
  - ILEUS PARALYTIC [None]
  - ASPIRATION [None]
  - VOMITING [None]
  - GASTROINTESTINAL NECROSIS [None]
  - MONOCYTOSIS [None]
  - C-REACTIVE PROTEIN INCREASED [None]
  - MALAISE [None]
  - METABOLIC ACIDOSIS [None]
  - GASTROINTESTINAL HYPOMOTILITY [None]
  - INTESTINAL PERFORATION [None]
